FAERS Safety Report 13895270 (Version 2)
Quarter: 2017Q4

REPORT INFORMATION
  Report Type: Report from Study
  Country: US (occurrence: US)
  Receive Date: 20170823
  Receipt Date: 20171108
  Transmission Date: 20180320
  Serious: No
  Sender: FDA-Public Use
  Company Number: PHEH2017US026124

PATIENT
  Age: 57 Year
  Sex: Female

DRUGS (1)
  1. COSENTYX [Suspect]
     Active Substance: SECUKINUMAB
     Indication: PSORIASIS
     Dosage: 150 MG, QMO
     Route: 058
     Dates: start: 20170912

REACTIONS (4)
  - Inappropriate schedule of drug administration [Unknown]
  - Pain in extremity [Unknown]
  - Fatigue [Unknown]
  - Tendon pain [Unknown]

NARRATIVE: CASE EVENT DATE: 20170912
